FAERS Safety Report 8575615-X (Version None)
Quarter: 2012Q3

REPORT INFORMATION
  Report Type: 
  Country: None (occurrence: None)
  Receive Date: 20120807
  Receipt Date: 20120802
  Transmission Date: 20120928
  Serious: Yes (Hospitalization, Other)
  Sender: FDA-Public Use
  Company Number: PHHY2012BR067461

PATIENT
  Age: 86 Year
  Sex: Male
  Weight: 80 kg

DRUGS (4)
  1. EXELON [Suspect]
     Indication: DEMENTIA ALZHEIMER'S TYPE
     Dosage: 1 PATCH (9 MG/5 CM2) A DAY
     Route: 062
  2. CLOPIDOGREL [Concomitant]
     Dosage: UNK UKN, UNK
  3. EXELON [Suspect]
     Dosage: 1 PATCH (27 MG/15 MC2) A DAY
     Route: 062
  4. EXELON [Suspect]
     Dosage: 1 PATCH (18 MG/10 CM2) A DAY
     Route: 062
     Dates: start: 20110101

REACTIONS (7)
  - WOUND [None]
  - APPLICATION SITE FISSURE [None]
  - APPLICATION SITE ULCER [None]
  - FEMUR FRACTURE [None]
  - APPLICATION SITE HAEMATOMA [None]
  - FALL [None]
  - DECUBITUS ULCER [None]
